FAERS Safety Report 12648977 (Version 1)
Quarter: 2016Q3

REPORT INFORMATION
  Report Type: Spontaneous
  Country: NL (occurrence: NL)
  Receive Date: 20160812
  Receipt Date: 20160812
  Transmission Date: 20161109
  Serious: Yes (Hospitalization, Other)
  Sender: FDA-Public Use
  Company Number: NL-JNJFOC-20160806339

PATIENT

DRUGS (2)
  1. INFLIXIMAB [Suspect]
     Active Substance: INFLIXIMAB
     Indication: CROHN^S DISEASE
     Route: 064
  2. INFLIXIMAB [Suspect]
     Active Substance: INFLIXIMAB
     Indication: COLITIS ULCERATIVE
     Route: 064

REACTIONS (15)
  - Respiratory tract infection [Recovered/Resolved]
  - Conjunctivitis [Recovered/Resolved]
  - Low birth weight baby [Unknown]
  - Paronychia [Recovered/Resolved]
  - Cleft palate [Unknown]
  - Small for dates baby [Unknown]
  - Tonsillitis [Recovered/Resolved]
  - Subcutaneous abscess [Recovered/Resolved]
  - Rotavirus infection [Recovered/Resolved]
  - Otitis media acute [Recovered/Resolved]
  - Foetal exposure during pregnancy [Unknown]
  - Premature baby [Unknown]
  - Respiratory syncytial virus infection [Recovered/Resolved]
  - Ventricular septal defect [Unknown]
  - Exposure during breast feeding [Unknown]
